FAERS Safety Report 17128491 (Version 1)
Quarter: 2019Q4

REPORT INFORMATION
  Report Type: Spontaneous
  Country: US (occurrence: US)
  Receive Date: 20191206
  Receipt Date: 20191206
  Transmission Date: 20200122
  Serious: Yes (Disabling)
  Sender: FDA-Public Use
  Company Number: None

PATIENT
  Age: 56 Year
  Sex: Female
  Weight: 54.9 kg

DRUGS (4)
  1. LEXAPRO [Concomitant]
     Active Substance: ESCITALOPRAM OXALATE
  2. EFFEXOR [Suspect]
     Active Substance: VENLAFAXINE HYDROCHLORIDE
     Indication: POST-TRAUMATIC STRESS DISORDER
     Route: 048
     Dates: start: 20140701, end: 20181215
  3. EFFEXOR [Suspect]
     Active Substance: VENLAFAXINE HYDROCHLORIDE
     Indication: DEPRESSION
     Route: 048
     Dates: start: 20140701, end: 20181215
  4. KLONOPIN [Concomitant]
     Active Substance: CLONAZEPAM

REACTIONS (11)
  - Loss of consciousness [None]
  - Fatigue [None]
  - Cognitive disorder [None]
  - Dyspraxia [None]
  - Sleep disorder [None]
  - Brain injury [None]
  - Balance disorder [None]
  - Depression [None]
  - Anxiety [None]
  - Drug withdrawal syndrome [None]
  - Memory impairment [None]

NARRATIVE: CASE EVENT DATE: 20181228
